FAERS Safety Report 9719143 (Version 1)
Quarter: 2013Q4

REPORT INFORMATION
  Report Type: Spontaneous
  Country: JP (occurrence: JP)
  Receive Date: 20131127
  Receipt Date: 20131127
  Transmission Date: 20140711
  Serious: Yes (Death)
  Sender: FDA-Public Use
  Company Number: PHHY2013JP132785

PATIENT
  Age: 89 Year
  Sex: Female

DRUGS (5)
  1. VINCRISTINE [Suspect]
     Indication: CHEMOTHERAPY
  2. PREDNISOLONE [Suspect]
     Indication: CHEMOTHERAPY
  3. RITUXIMAB [Suspect]
     Indication: CHEMOTHERAPY
  4. CYCLOPHOSPHAMIDE [Suspect]
     Indication: CHEMOTHERAPY
  5. BENDAMUSTINE [Suspect]
     Dosage: 120 MG/M2/DAY

REACTIONS (3)
  - Acute respiratory failure [Fatal]
  - Pneumocystis jirovecii pneumonia [Fatal]
  - Drug effect incomplete [Unknown]
